FAERS Safety Report 15279453 (Version 1)
Quarter: 2018Q3

REPORT INFORMATION
  Report Type: Spontaneous
  Country: US (occurrence: US)
  Receive Date: 20180815
  Receipt Date: 20180815
  Transmission Date: 20181010
  Serious: Yes (Other)
  Sender: FDA-Public Use
  Company Number: US-ELI_LILLY_AND_COMPANY-US201808005657

PATIENT
  Sex: Male
  Weight: 72.56 kg

DRUGS (4)
  1. LITHIUM. [Concomitant]
     Active Substance: LITHIUM
     Indication: AFFECTIVE DISORDER
     Dosage: UNK UNK, BID
     Route: 048
     Dates: start: 20180101
  2. PROZAC [Suspect]
     Active Substance: FLUOXETINE HYDROCHLORIDE
     Indication: DEPRESSION
     Dosage: UNK UNK, EACH MORNING
     Route: 048
     Dates: start: 201710, end: 20180101
  3. ZYPREXA [Suspect]
     Active Substance: OLANZAPINE
     Indication: ANXIETY
     Dosage: UNK, EACH EVENING
     Route: 048
     Dates: start: 20180101
  4. TRAZODONE [Concomitant]
     Active Substance: TRAZODONE HYDROCHLORIDE
     Indication: SLEEP DISORDER
     Dosage: UNK, EACH EVENING
     Route: 048
     Dates: start: 20180101

REACTIONS (2)
  - Off label use [Not Recovered/Not Resolved]
  - Tremor [Recovering/Resolving]
